FAERS Safety Report 9245692 (Version 1)
Quarter: 2013Q2

REPORT INFORMATION
  Report Type: Spontaneous
  Country: US (occurrence: US)
  Receive Date: 20130422
  Receipt Date: 20130422
  Transmission Date: 20140414
  Serious: No
  Sender: FDA-Public Use
  Company Number: US-BAYER-2013-050175

PATIENT
  Sex: Female

DRUGS (3)
  1. CIPRO [Suspect]
     Indication: CYSTITIS
  2. VITAMIN E [Concomitant]
  3. VITAMIN B12 [Concomitant]

REACTIONS (2)
  - Therapy cessation [None]
  - Fear [None]
